FAERS Safety Report 24869182 (Version 3)
Quarter: 2025Q1

REPORT INFORMATION
  Report Type: Spontaneous
  Country: AR (occurrence: AR)
  Receive Date: 20250121
  Receipt Date: 20250206
  Transmission Date: 20250409
  Serious: Yes (Life-Threatening, Hospitalization)
  Sender: BIOMARIN
  Company Number: AR-BIOMARINAP-AR-2025-163234

PATIENT

DRUGS (1)
  1. NAGLAZYME [Suspect]
     Active Substance: GALSULFASE
     Indication: Mucopolysaccharidosis VI
     Dosage: UNK, QW
     Route: 042
     Dates: start: 20171101

REACTIONS (5)
  - Dyspnoea [Recovering/Resolving]
  - Resuscitation [Recovering/Resolving]
  - Increased bronchial secretion [Recovering/Resolving]
  - Meningitis bacterial [Recovered/Resolved]
  - Pseudomonas infection [Recovered/Resolved]

NARRATIVE: CASE EVENT DATE: 20250101
